FAERS Safety Report 16450816 (Version 1)
Quarter: 2019Q2

REPORT INFORMATION
  Report Type: Spontaneous
  Country: US (occurrence: US)
  Receive Date: 20190619
  Receipt Date: 20190619
  Transmission Date: 20190711
  Serious: Yes (Other)
  Sender: FDA-Public Use
  Company Number: US-BAYER-2019-113322

PATIENT
  Age: 21 Year
  Sex: Female

DRUGS (2)
  1. MIRENA [Suspect]
     Active Substance: LEVONORGESTREL
     Indication: CONTRACEPTION
  2. MIRENA [Suspect]
     Active Substance: LEVONORGESTREL
     Indication: CONTRACEPTION
     Dosage: 20 MCG/24HR, CONT
     Route: 015
     Dates: start: 201708

REACTIONS (6)
  - Drug ineffective [None]
  - Genital haemorrhage [None]
  - Mood swings [Not Recovered/Not Resolved]
  - Abortion spontaneous [None]
  - Pregnancy with contraceptive device [None]
  - Abdominal pain lower [None]

NARRATIVE: CASE EVENT DATE: 2018
